FAERS Safety Report 6188286-7 (Version None)
Quarter: 2009Q2

REPORT INFORMATION
  Report Type: 
  Country: None (occurrence: None)
  Receive Date: 20090513
  Receipt Date: 20090501
  Transmission Date: 20091009
  Serious: Yes (Death, Hospitalization, Other)
  Sender: FDA-Public Use
  Company Number: US-PFIZER INC-2008046326

PATIENT
  Sex: Male
  Weight: 37 kg

DRUGS (4)
  1. SUNITINIB MALATE [Suspect]
     Indication: HEAD AND NECK CANCER
     Route: 048
     Dates: start: 20080428, end: 20080523
  2. DECADRON [Suspect]
     Dosage: 8 MG, 4X/DAY
     Dates: start: 20080401, end: 20080523
  3. OXYCODONE [Suspect]
  4. DILAUDID [Suspect]

REACTIONS (15)
  - ACIDOSIS [None]
  - HAEMOGLOBIN DECREASED [None]
  - HYPERGLYCAEMIA [None]
  - HYPERNATRAEMIA [None]
  - HYPOALBUMINAEMIA [None]
  - HYPOCALCAEMIA [None]
  - HYPOKALAEMIA [None]
  - LIVER FUNCTION TEST ABNORMAL [None]
  - MENTAL STATUS CHANGES [None]
  - NECK PAIN [None]
  - NEUTROPENIA [None]
  - PLATELET COUNT DECREASED [None]
  - PNEUMONIA [None]
  - STAPHYLOCOCCAL SEPSIS [None]
  - WHITE BLOOD CELL COUNT DECREASED [None]
